FAERS Safety Report 4297698-8 (Version None)
Quarter: 2004Q1

REPORT INFORMATION
  Report Type: 
  Country: None (occurrence: None)
  Receive Date: 20040126
  Receipt Date: 20030918
  Transmission Date: 20041129
  Serious: No
  Sender: FDA-Public Use
  Company Number: USA030947678

PATIENT
  Age: 12 Year
  Sex: Male

DRUGS (1)
  1. STRATTERA [Suspect]

REACTIONS (4)
  - CONTUSION [None]
  - EXCORIATION [None]
  - NAUSEA [None]
  - ROAD TRAFFIC ACCIDENT [None]
